FAERS Safety Report 4672888-0 (Version None)
Quarter: 2005Q2

REPORT INFORMATION
  Report Type: 
  Country: None (occurrence: None)
  Receive Date: 20050523
  Receipt Date: 20050511
  Transmission Date: 20051028
  Serious: Yes (Other)
  Sender: FDA-Public Use
  Company Number: 2005074519

PATIENT
  Age: 26 Year
  Sex: Female

DRUGS (5)
  1. VIRACEPT [Suspect]
     Indication: HIV INFECTION
     Dosage: 2500 MG (2500 MG DAILY) ORAL
     Route: 048
     Dates: end: 20020204
  2. ZERIT [Suspect]
     Indication: HIV INFECTION
     Dosage: 50 MG (50 MG DAILY) ORAL
     Route: 048
     Dates: end: 20020204
  3. EFAVIRENZ [Suspect]
     Indication: HIV INFECTION
     Dosage: 600 MG DAILY ORAL
     Route: 048
     Dates: end: 20020118
  4. VIRAMUNE [Suspect]
     Indication: HIV INFECTION
     Dosage: 200 MG DAILY ORAL
     Route: 048
     Dates: start: 20020118, end: 20020204
  5. RETROVIR [Suspect]
     Indication: HIV INFECTION
     Dates: start: 20020410, end: 20020726

REACTIONS (2)
  - DRUG EXPOSURE DURING PREGNANCY [None]
  - STEVENS-JOHNSON SYNDROME [None]
